FAERS Safety Report 7132503-3 (Version None)
Quarter: 2010Q4

REPORT INFORMATION
  Report Type: 
  Country: None (occurrence: None)
  Receive Date: 20101202
  Receipt Date: 20101130
  Transmission Date: 20110411
  Serious: Yes (Hospitalization)
  Sender: FDA-Public Use
  Company Number: BE-PFIZER INC-2009252937

PATIENT
  Age: 57 Year
  Sex: Female
  Weight: 64 kg

DRUGS (9)
  1. SUNITINIB MALATE [Suspect]
     Indication: SMALL CELL LUNG CANCER EXTENSIVE STAGE
     Dosage: 25 MG, 1X/DAY
     Route: 048
     Dates: start: 20090608, end: 20090630
  2. BISOPROLOL FUMARATE [Concomitant]
     Indication: HYPERTENSION
     Dosage: 10 MG, 1X/DAY
     Route: 048
     Dates: start: 20080101
  3. MESALAZINE [Concomitant]
     Indication: CROHN'S DISEASE
     Dosage: 500 MG, 2X/DAY
     Route: 048
     Dates: start: 20040301
  4. SPIRIVA [Concomitant]
     Indication: CHRONIC OBSTRUCTIVE PULMONARY DISEASE
     Dosage: 18 UG, 1X/DAY
     Route: 048
  5. SERETIDE [Concomitant]
     Indication: CHRONIC OBSTRUCTIVE PULMONARY DISEASE
     Dosage: 25/250 MICROG 2X/DAY
     Route: 048
  6. MAGNESPASMYL [Concomitant]
     Indication: CROHN'S DISEASE
     Dosage: 50 MG, 2X/DAY
     Route: 048
  7. GLUCOPHAGE [Concomitant]
     Indication: DIABETES MELLITUS
     Dosage: 500 MG, 2X/DAY
     Route: 048
     Dates: start: 20081023
  8. CINNARIZINE [Concomitant]
     Indication: HYPERTENSION
     Dosage: 75 MG, 1X/DAY
     Route: 048
     Dates: start: 20081023
  9. TRADONAL [Concomitant]
     Indication: PAIN
     Dosage: 100 MG, 1X/DAY
     Route: 048
     Dates: start: 20090701

REACTIONS (3)
  - ANAEMIA [None]
  - NEUTROPENIA [None]
  - THROMBOCYTOPENIA [None]
